FAERS Safety Report 20816260 (Version 1)
Quarter: 2022Q2

REPORT INFORMATION
  Report Type: Spontaneous
  Country: US (occurrence: US)
  Receive Date: 20220511
  Receipt Date: 20220511
  Transmission Date: 20220721
  Serious: No
  Sender: FDA-Public Use
  Company Number: US-drreddys-SPO/USA/22/0149682

PATIENT
  Age: 32 Year
  Sex: Female

DRUGS (2)
  1. ZENATANE [Suspect]
     Active Substance: ISOTRETINOIN
     Indication: Product used for unknown indication
     Dosage: RMA ISSUE DATE: 15 MARCH 2022 04:42:39 PM AND 11 APRIL 2022 09:33:44 AM
  2. ZENATANE [Suspect]
     Active Substance: ISOTRETINOIN
     Dosage: RMA ISSUE DATE: 15 MARCH 2022 04:42:39 PM AND 11 APRIL 2022 09:33:44 AM

REACTIONS (2)
  - Blood triglycerides increased [Unknown]
  - Hepatic enzyme increased [Unknown]
